FAERS Safety Report 19677644 (Version 1)
Quarter: 2021Q3

REPORT INFORMATION
  Report Type: Spontaneous
  Country: FR (occurrence: FR)
  Receive Date: 20210809
  Receipt Date: 20210809
  Transmission Date: 20211014
  Serious: Yes (Hospitalization)
  Sender: FDA-Public Use
  Company Number: FR-ALLERGAN-2127653US

PATIENT
  Sex: Female

DRUGS (9)
  1. FUROSEMIDE ARROW [Concomitant]
     Active Substance: FUROSEMIDE
     Indication: OEDEMA PERIPHERAL
     Dosage: 40 MG, QD
     Route: 048
     Dates: start: 20210513
  2. PANTOPRAZOLE EG [Concomitant]
     Active Substance: PANTOPRAZOLE SODIUM
     Indication: GASTROINTESTINAL ULCER
     Dosage: 20 MG, QD
     Route: 048
     Dates: start: 20210512
  3. COUMADINE [Concomitant]
     Active Substance: WARFARIN SODIUM
     Indication: ACQUIRED PROTEIN S DEFICIENCY
     Dosage: 2 MG, QD
     Route: 048
  4. URAPIDIL STRAGEN LP [Concomitant]
     Active Substance: URAPIDIL HYDROCHLORIDE
     Indication: HYPERTENSION
     Route: 048
     Dates: start: 20210512, end: 20210524
  5. KARDEGIC [Concomitant]
     Active Substance: ASPIRIN DL-LYSINE
     Indication: ARTERIOSCLEROSIS CORONARY ARTERY
     Dosage: 75 MG, QD
     Route: 048
  6. NEFOPAM MEDISOL [Concomitant]
     Active Substance: NEFOPAM HYDROCHLORIDE
     Indication: PAIN
     Route: 042
     Dates: start: 20210514, end: 20210601
  7. DOLIPRANE [Concomitant]
     Active Substance: ACETAMINOPHEN
     Indication: PAIN
     Dosage: 500 MG, QD
     Dates: start: 20210512
  8. TARDYFERON [Concomitant]
     Active Substance: FERROUS SULFATE
     Indication: IRON DEFICIENCY ANAEMIA
     Dosage: 80 MG, QD
     Dates: start: 20210511
  9. XYDALBA [Suspect]
     Active Substance: DALBAVANCIN HYDROCHLORIDE
     Indication: ENDOCARDITIS
     Dosage: 1000 MG, SINGLE
     Route: 042
     Dates: start: 20210512, end: 20210512

REACTIONS (3)
  - Off label use [Unknown]
  - Pyrexia [Recovered/Resolved]
  - Purpura [Recovered/Resolved]

NARRATIVE: CASE EVENT DATE: 20210512
